FAERS Safety Report 17369676 (Version 1)
Quarter: 2020Q1

REPORT INFORMATION
  Report Type: Spontaneous
  Country: CA (occurrence: CA)
  Receive Date: 20200205
  Receipt Date: 20200205
  Transmission Date: 20200409
  Serious: Yes (Other)
  Sender: FDA-Public Use
  Company Number: CA-BEH-2020112521

PATIENT
  Age: 37 Year
  Sex: Female

DRUGS (9)
  1. RED BLOOD CELLS [Concomitant]
     Active Substance: HUMAN RED BLOOD CELL
     Dosage: UNK, 4/4 FRACTIONS
     Dates: start: 20191224, end: 20191224
  2. ALBUREX [Suspect]
     Active Substance: ALBUMIN HUMAN
     Dosage: UNK, 4/4 FRACTION
     Route: 065
     Dates: start: 20191224, end: 20191224
  3. FRESH FROZEN PLASMA [Concomitant]
     Active Substance: HUMAN PLASMA
     Dosage: UNK, 4/4 FRACTIONS
     Dates: start: 20191224, end: 20191224
  4. FRESH FROZEN PLASMA [Concomitant]
     Active Substance: HUMAN PLASMA
     Dosage: UNK, 4/4 FRACTIONS
     Dates: start: 20191224, end: 20191224
  5. FRESH FROZEN PLASMA [Concomitant]
     Active Substance: HUMAN PLASMA
     Dosage: UNK, 4/4 FRACTIONS
     Dates: start: 20191224, end: 20191224
  6. RED BLOOD CELLS [Concomitant]
     Active Substance: HUMAN RED BLOOD CELL
     Dosage: UNK, 4/4 FRACTIONS
     Dates: start: 20191224, end: 20191224
  7. ALBUREX [Suspect]
     Active Substance: ALBUMIN HUMAN
     Indication: HAEMORRHAGE
     Dosage: UNK, 4/4 FRACTION
     Route: 065
     Dates: start: 20191224, end: 20191224
  8. RED BLOOD CELLS [Concomitant]
     Active Substance: HUMAN RED BLOOD CELL
     Dosage: UNK, 4/4 FRACTIONS
     Dates: start: 20191224, end: 20191224
  9. FRESH FROZEN PLASMA [Concomitant]
     Active Substance: HUMAN PLASMA
     Dosage: UNK, 4/4 FRACTIONS
     Dates: start: 20191224, end: 20191224

REACTIONS (4)
  - Hypotension [Recovered/Resolved]
  - Oxygen saturation decreased [Recovered/Resolved]
  - Transfusion-related acute lung injury [Recovered/Resolved]
  - Lung infiltration [Recovered/Resolved]

NARRATIVE: CASE EVENT DATE: 20191224
